FAERS Safety Report 17811479 (Version 1)
Quarter: 2020Q2

REPORT INFORMATION
  Report Type: Spontaneous
  Country: US (occurrence: US)
  Receive Date: 20200520
  Receipt Date: 20200520
  Transmission Date: 20200714
  Serious: No
  Sender: FDA-Public Use
  Company Number: None

PATIENT
  Age: 7 Year
  Sex: Male
  Weight: 23.1 kg

DRUGS (3)
  1. VANCOMYCIN [Suspect]
     Active Substance: VANCOMYCIN
     Indication: OSTEOMYELITIS
     Dosage: ?          OTHER FREQUENCY:Q6H;?
     Route: 042
     Dates: start: 20200504, end: 20200515
  2. RIFAMPIN 150 MG PO [Concomitant]
     Dates: start: 20200504, end: 20200509
  3. CLINDAMYCIN IV 300 MG [Concomitant]
     Dates: start: 20200504, end: 20200509

REACTIONS (3)
  - Pyrexia [None]
  - Leukopenia [None]
  - Rash [None]

NARRATIVE: CASE EVENT DATE: 20200507
